FAERS Safety Report 4730266-X (Version None)
Quarter: 2005Q3

REPORT INFORMATION
  Report Type: 
  Country: None (occurrence: None)
  Receive Date: 20050728
  Receipt Date: 20050721
  Transmission Date: 20060218
  Serious: Yes (Life-Threatening)
  Sender: FDA-Public Use
  Company Number: 2005-130621-NL

PATIENT
  Age: 40 Year
  Sex: Male

DRUGS (3)
  1. MIRTAZAPINE [Suspect]
     Indication: DEPRESSION
     Dosage: 15 MG ORAL
     Route: 048
     Dates: start: 20050701, end: 20050702
  2. VENLAFAXINE [Suspect]
     Indication: DEPRESSION
     Dosage: 0.5 DF ORAL
     Route: 048
     Dates: start: 20050701, end: 20050702
  3. ALPRAZOLAM [Suspect]
     Indication: INSOMNIA
     Dosage: 0.5 DF ORAL
     Route: 048
     Dates: start: 20050701, end: 20050702

REACTIONS (2)
  - COMA [None]
  - HEART RATE DECREASED [None]
